FAERS Safety Report 10146289 (Version 1)
Quarter: 2014Q2

REPORT INFORMATION
  Report Type: Report from Study
  Country: CA (occurrence: CA)
  Receive Date: 20140501
  Receipt Date: 20140501
  Transmission Date: 20141212
  Serious: Yes (Other)
  Sender: FDA-Public Use
  Company Number: CA-JNJFOC-20140419407

PATIENT
  Sex: Male
  Weight: 119 kg

DRUGS (12)
  1. REMICADE [Suspect]
     Indication: COLITIS ULCERATIVE
     Dosage: TOTAL 3 DOSES RECEIVED
     Route: 042
     Dates: start: 20140228, end: 20140411
  2. CRESTOR [Concomitant]
     Route: 065
  3. ASAPHEN [Concomitant]
     Route: 048
  4. DIAMICRON [Concomitant]
     Route: 065
  5. ONGLYZA [Concomitant]
     Route: 065
  6. METFORMIN [Concomitant]
     Route: 065
  7. INSULIN [Concomitant]
     Route: 065
  8. RAPAFLO [Concomitant]
     Route: 065
  9. LASIX [Concomitant]
     Route: 065
  10. KCL [Concomitant]
     Route: 065
  11. FERROUS SULFATE [Concomitant]
     Route: 065
  12. MICARDIS [Concomitant]
     Route: 048

REACTIONS (1)
  - Pulmonary mass [Unknown]
